FAERS Safety Report 10267670 (Version 1)
Quarter: 2014Q2

REPORT INFORMATION
  Report Type: Spontaneous
  Country: US (occurrence: None)
  Receive Date: 20140626
  Receipt Date: 20140626
  Transmission Date: 20141212
  Serious: Yes (Other)
  Sender: FDA-Public Use
  Company Number: None

PATIENT
  Age: 66 Year
  Sex: Female
  Weight: 50.35 kg

DRUGS (3)
  1. DULOXETINE [Suspect]
     Indication: DEPRESSION
     Route: 048
     Dates: start: 20140326, end: 20140509
  2. DULOXETINE [Suspect]
     Indication: PAIN
     Route: 048
     Dates: start: 20140326, end: 20140509
  3. ALPRAZOLAM [Concomitant]

REACTIONS (7)
  - Depression [None]
  - Lethargy [None]
  - Dysphonia [None]
  - Anxiety [None]
  - Arthralgia [None]
  - Product substitution issue [None]
  - Condition aggravated [None]
